FAERS Safety Report 9205039 (Version 1)
Quarter: 2013Q2

REPORT INFORMATION
  Report Type: Spontaneous
  Country: US (occurrence: None)
  Receive Date: 20130401
  Receipt Date: 20130401
  Transmission Date: 20140414
  Serious: Yes (Disabling)
  Sender: FDA-Public Use
  Company Number: None

PATIENT
  Age: 69 Year
  Sex: Female
  Weight: 78.93 kg

DRUGS (1)
  1. GEMFIBROZIL [Suspect]
     Indication: BLOOD CHOLESTEROL
     Dosage: 1 TABLET, TWICE DAILY, PO
     Route: 048
     Dates: start: 20130222, end: 20130308

REACTIONS (4)
  - Arthralgia [None]
  - Muscle disorder [None]
  - Activities of daily living impaired [None]
  - Movement disorder [None]
